FAERS Safety Report 9936480 (Version 1)
Quarter: 2014Q1

REPORT INFORMATION
  Report Type: Spontaneous
  Country: US (occurrence: US)
  Receive Date: 20140228
  Receipt Date: 20140228
  Transmission Date: 20141002
  Serious: No
  Sender: FDA-Public Use
  Company Number: US-AMGEN-USASP2014004966

PATIENT
  Age: 59 Year
  Sex: Male

DRUGS (11)
  1. ENBREL [Suspect]
     Indication: RHEUMATOID ARTHRITIS
     Dosage: 50 MG, QWK
     Route: 058
     Dates: start: 201305, end: 20131202
  2. ENBREL [Suspect]
     Indication: PSORIATIC ARTHROPATHY
  3. ACTHAR                             /00005501/ [Concomitant]
     Dosage: UNK
  4. GLUCOVANCE [Concomitant]
     Dosage: UNK
  5. NOVOLOG [Concomitant]
     Dosage: 70/30
  6. OXYCONTIN [Concomitant]
     Dosage: UNK
  7. FLOMAX                             /00889901/ [Concomitant]
     Dosage: UNK
  8. DETROL [Concomitant]
     Dosage: UNK
  9. PROTONIX [Concomitant]
     Dosage: UNK
  10. ZANTAC [Concomitant]
     Dosage: UNK
  11. VOLTAREN                           /00372301/ [Concomitant]
     Dosage: UNK

REACTIONS (3)
  - Drug effect decreased [Unknown]
  - Rheumatoid arthritis [Unknown]
  - Psoriatic arthropathy [Unknown]
